FAERS Safety Report 5034302-5 (Version None)
Quarter: 2006Q2

REPORT INFORMATION
  Report Type: 
  Country: None (occurrence: None)
  Receive Date: 20060626
  Receipt Date: 20060615
  Transmission Date: 20061013
  Serious: Yes (Other)
  Sender: FDA-Public Use
  Company Number: US-JNJFOC-20060505447

PATIENT
  Sex: Female
  Weight: 75.3 kg

DRUGS (3)
  1. REMICADE [Suspect]
     Indication: CROHN'S DISEASE
     Route: 042
  2. ASACOL [Concomitant]
  3. 6-MP [Concomitant]

REACTIONS (3)
  - ABORTION SPONTANEOUS [None]
  - DRUG EXPOSURE DURING PREGNANCY [None]
  - PYELONEPHRITIS [None]
